FAERS Safety Report 6922889-4 (Version None)
Quarter: 2010Q3

REPORT INFORMATION
  Report Type: 
  Country: None (occurrence: None)
  Receive Date: 20100813
  Receipt Date: 20100804
  Transmission Date: 20110219
  Serious: Yes (Death, Life-Threatening, Hospitalization)
  Sender: FDA-Public Use
  Company Number: FR-KINGPHARMUSA00001-K201000984

PATIENT
  Age: 80 Year
  Sex: Male

DRUGS (20)
  1. ALTACE [Suspect]
     Dosage: 5 MG, QD
     Route: 048
     Dates: end: 20100322
  2. HYDROCHLOROTHIAZIDE [Suspect]
     Dosage: 25 MG, QD
     Route: 048
     Dates: end: 20100322
  3. TRUXAL [Suspect]
     Dosage: 60 MG, QD
     Route: 048
     Dates: start: 20100321, end: 20100322
  4. METOPROLOL TARTRATE [Suspect]
     Dosage: 25 MG, QD
     Route: 048
     Dates: end: 20100322
  5. MOLSIDOMINE [Suspect]
     Dosage: 24 MG, QD
     Route: 048
     Dates: end: 20100304
  6. MOLSIDOMINE [Suspect]
     Dosage: 16 MG, QD
     Route: 048
     Dates: start: 20100305, end: 20100322
  7. SPASMEX [Suspect]
     Dosage: 15 MG, QD
     Route: 048
     Dates: end: 20100314
  8. SPASMEX [Suspect]
     Dosage: 30 MG, QD
     Route: 048
     Dates: start: 20100315, end: 20100322
  9. TORSEMIDE [Suspect]
     Dosage: 20 MG, QD
     Route: 048
     Dates: start: 20100317, end: 20100322
  10. CIPRO [Suspect]
     Dosage: 500 MG, QD
     Route: 048
     Dates: start: 20100317, end: 20100322
  11. LORZAAR [Suspect]
     Dosage: 50 MG, QD
     Route: 048
     Dates: start: 20100319, end: 20100322
  12. LORAZEPAM [Concomitant]
     Dosage: UNK
     Dates: start: 20100319, end: 20100322
  13. OXAZEPAM [Concomitant]
     Dosage: UNK
     Dates: start: 20100318, end: 20100322
  14. ACETYLSALICYLIC ACID SRT [Concomitant]
     Dosage: UNK
     Dates: end: 20100322
  15. ALNA [Concomitant]
     Dosage: UNK
     Dates: end: 20100322
  16. PANTOPRAZOLE [Concomitant]
     Dosage: UNK
     Dates: end: 20100322
  17. FOLIC ACID [Concomitant]
     Dosage: UNK
     Dates: start: 20100311, end: 20100322
  18. ATORVASTATIN [Concomitant]
     Dosage: UNK
     Dates: start: 20100319, end: 20100322
  19. MELPERONE [Concomitant]
     Dosage: 200 MG, QD
     Route: 048
     Dates: start: 20100305, end: 20100317
  20. PIPAMPERONE [Concomitant]
     Dosage: UNK
     Dates: start: 20100317, end: 20100317

REACTIONS (9)
  - CARDIAC FAILURE [None]
  - HYPOKALAEMIA [None]
  - RESTLESSNESS [None]
  - SLEEP PHASE RHYTHM DISTURBANCE [None]
  - TACHYARRHYTHMIA [None]
  - URETHRAL HAEMORRHAGE [None]
  - URETHRAL INJURY [None]
  - VENTRICULAR FIBRILLATION [None]
  - VENTRICULAR FLUTTER [None]
